FAERS Safety Report 16650165 (Version 1)
Quarter: 2019Q3

REPORT INFORMATION
  Report Type: Report from Study
  Country: US (occurrence: US)
  Receive Date: 20190731
  Receipt Date: 20190731
  Transmission Date: 20191004
  Serious: Yes (Other)
  Sender: FDA-Public Use
  Company Number: US-ROCHE-2360434

PATIENT
  Sex: Female
  Weight: 74.91 kg

DRUGS (4)
  1. RITUXAN [Suspect]
     Active Substance: RITUXIMAB
     Indication: SKIN DISORDER
     Route: 041
     Dates: start: 201812, end: 201812
  2. RITUXAN [Suspect]
     Active Substance: RITUXIMAB
     Route: 041
     Dates: start: 201901
  3. PREDNISONE. [Concomitant]
     Active Substance: PREDNISONE
     Route: 065
     Dates: end: 20190717
  4. IRON [Concomitant]
     Active Substance: IRON
     Indication: ANAEMIA
     Route: 048

REACTIONS (5)
  - Off label use [Unknown]
  - Muscle strain [Not Recovered/Not Resolved]
  - Muscle tightness [Not Recovered/Not Resolved]
  - Systemic lupus erythematosus [Not Recovered/Not Resolved]
  - Intentional product use issue [Unknown]
